FAERS Safety Report 4504021-X (Version None)
Quarter: 2004Q3

REPORT INFORMATION
  Report Type: 
  Country: None (occurrence: None)
  Receive Date: 20040927
  Receipt Date: 20040714
  Transmission Date: 20050211
  Serious: No
  Sender: FDA-Public Use
  Company Number: USA040671359

PATIENT
  Age: 36 Year
  Sex: Female
  Weight: 60 kg

DRUGS (2)
  1. STRATTERA [Suspect]
     Indication: ATTENTION DEFICIT/HYPERACTIVITY DISORDER
     Dosage: 40 MG DAY
     Dates: start: 20040625
  2. FLUOXETINE [Concomitant]

REACTIONS (10)
  - ABNORMAL FAECES [None]
  - ANOREXIA [None]
  - CONSTIPATION [None]
  - DIZZINESS [None]
  - FEELING COLD [None]
  - FEELING HOT [None]
  - HYPERHIDROSIS [None]
  - HYPERTENSION [None]
  - ILL-DEFINED DISORDER [None]
  - SKIN ODOUR ABNORMAL [None]
